FAERS Safety Report 14071137 (Version 2)
Quarter: 2018Q4

REPORT INFORMATION
  Report Type: Spontaneous
  Country: US (occurrence: US)
  Receive Date: 20171010
  Receipt Date: 20181120
  Transmission Date: 20190204
  Serious: No
  Sender: FDA-Public Use
  Company Number: US-JNJFOC-20170801994

PATIENT
  Age: 74 Year
  Sex: Female

DRUGS (7)
  1. MULTIVITAMINS [Concomitant]
     Active Substance: VITAMINS
  2. MULTIVITAMINS [Concomitant]
     Active Substance: VITAMINS
  3. IMBRUVICA [Suspect]
     Active Substance: IBRUTINIB
     Indication: WALDENSTROM^S MACROGLOBULINAEMIA
     Route: 048
     Dates: start: 20170601
  4. MULTIVITAMINS [Concomitant]
     Active Substance: VITAMINS
  5. CALCIUM CARBONATE W/COLECALCIFEROL [Concomitant]
     Active Substance: CALCIUM CARBONATE\CHOLECALCIFEROL
  6. OCUVITE [Concomitant]
     Active Substance: VITAMINS
  7. COMPAZINE [Concomitant]
     Active Substance: PROCHLORPERAZINE MALEATE

REACTIONS (3)
  - Nausea [Unknown]
  - Rash papular [Unknown]
  - Kidney infection [Unknown]

NARRATIVE: CASE EVENT DATE: 201706
